FAERS Safety Report 5789142-6 (Version None)
Quarter: 2008Q2

REPORT INFORMATION
  Report Type: 
  Country: None (occurrence: None)
  Receive Date: 20080626
  Receipt Date: 20071203
  Transmission Date: 20081010
  Serious: No
  Sender: FDA-Public Use
  Company Number: US-ASTRAZENECA-2007UW27520

PATIENT
  Age: 3 Year
  Sex: Female
  Weight: 15.4 kg

DRUGS (3)
  1. PULMICORT RESPULES [Suspect]
     Indication: BRONCHITIS
     Dosage: 4 DOSES SO FAR
     Route: 055
     Dates: start: 20071201
  2. ALBUTEROL [Concomitant]
  3. AMOXICILLIN [Concomitant]

REACTIONS (1)
  - SOMNOLENCE [None]
